FAERS Safety Report 9581464 (Version 5)
Quarter: 2014Q2

REPORT INFORMATION
  Report Type: Spontaneous
  Country: BR (occurrence: BR)
  Receive Date: 20131002
  Receipt Date: 20140403
  Transmission Date: 20141212
  Serious: Yes (Other)
  Sender: FDA-Public Use
  Company Number: CHPA2013BR014805

PATIENT
  Age: 63 Year
  Sex: Female

DRUGS (5)
  1. PARCEL [Suspect]
     Indication: MIGRAINE
     Dosage: 1 DF, QD PRN
     Route: 048
  2. PARCEL [Suspect]
     Indication: TEMPOROMANDIBULAR JOINT SYNDROME
  3. PARCEL [Suspect]
     Indication: HEADACHE
  4. TEGRETOL [Suspect]
     Indication: TRIGEMINAL NEURALGIA
     Dosage: 3 OR MORE TABLETS, QD PRN
     Route: 048
  5. TEGRETOL [Suspect]
     Dosage: 0.5-1 TABLET, TID
     Route: 048

REACTIONS (16)
  - Poisoning [Not Recovered/Not Resolved]
  - Blister [Not Recovered/Not Resolved]
  - Facial pain [Not Recovered/Not Resolved]
  - Speech disorder [Not Recovered/Not Resolved]
  - Nausea [Recovered/Resolved]
  - Muscular weakness [Not Recovered/Not Resolved]
  - Gait disturbance [Not Recovered/Not Resolved]
  - Pain [Not Recovered/Not Resolved]
  - Feeling hot [Not Recovered/Not Resolved]
  - Disease recurrence [Not Recovered/Not Resolved]
  - Swelling [Not Recovered/Not Resolved]
  - Retching [Not Recovered/Not Resolved]
  - Nervousness [Not Recovered/Not Resolved]
  - Fear [Not Recovered/Not Resolved]
  - Diarrhoea [Not Recovered/Not Resolved]
  - Dizziness [Recovered/Resolved]
